FAERS Safety Report 16906849 (Version 1)
Quarter: 2019Q4

REPORT INFORMATION
  Report Type: Report from Study
  Country: VN (occurrence: VN)
  Receive Date: 20191011
  Receipt Date: 20191011
  Transmission Date: 20200122
  Serious: Yes (Other)
  Sender: FDA-Public Use
  Company Number: VN-ROCHE-2430197

PATIENT

DRUGS (2)
  1. VINORELBINE [Suspect]
     Active Substance: VINORELBINE TARTRATE
     Indication: HER-2 POSITIVE BREAST CANCER
     Route: 042
  2. TRASTUZUMAB. [Suspect]
     Active Substance: TRASTUZUMAB
     Indication: HER-2 POSITIVE BREAST CANCER
     Route: 041

REACTIONS (11)
  - Thrombocytopenia [Unknown]
  - Alopecia [Unknown]
  - Leukopenia [Unknown]
  - Intentional product use issue [Unknown]
  - Anaemia [Unknown]
  - Off label use [Unknown]
  - Diarrhoea [Unknown]
  - Hepatotoxicity [Unknown]
  - Vomiting [Unknown]
  - Cardiotoxicity [Unknown]
  - Nausea [Unknown]
